FAERS Safety Report 6179102-8 (Version None)
Quarter: 2009Q2

REPORT INFORMATION
  Report Type: 
  Country: None (occurrence: None)
  Receive Date: 20090430
  Receipt Date: 20090420
  Transmission Date: 20091009
  Serious: No
  Sender: FDA-Public Use
  Company Number: 233432K09USA

PATIENT
  Age: 63 Year
  Sex: Female
  Weight: 59 kg

DRUGS (8)
  1. REBIF [Suspect]
     Indication: MULTIPLE SCLEROSIS
     Dosage: 44 MCG, 3 IN 1 WEEKS, SUBCUTANEOUS
     Route: 058
     Dates: start: 20071212
  2. SIMVASTATIN [Concomitant]
  3. ASPIRIN [Concomitant]
  4. PEPCID COMPLETE (FAMOTIDINE) [Concomitant]
  5. MAGNESIUM (MAGNESIUM HYDROXIDE) [Concomitant]
  6. TYLENOL ARTHRITIS STRENGTH (PARACETAMOL) [Concomitant]
  7. RANITIDINE (RANITIDINE /00550801/) [Concomitant]
  8. TRAZODONE HCL [Concomitant]

REACTIONS (2)
  - ANAEMIA [None]
  - OSTEOPOROSIS [None]
